FAERS Safety Report 4389426-2 (Version None)
Quarter: 2004Q2

REPORT INFORMATION
  Report Type: 
  Country: None (occurrence: None)
  Receive Date: 20040630
  Receipt Date: 20040516
  Transmission Date: 20050107
  Serious: Yes (Other)
  Sender: FDA-Public Use
  Company Number: JP-JNJFOC-20040300473

PATIENT
  Age: 67 Year
  Sex: Female

DRUGS (7)
  1. REMICADE [Suspect]
     Indication: RHEUMATOID ARTHRITIS
     Dosage: 126 MG, INTRAVENOUS
     Route: 042
     Dates: start: 20031218
  2. METHOTREXATE [Concomitant]
  3. BACTRIM [Concomitant]
  4. ETODOLAC [Concomitant]
  5. FLUCONAZOLE [Concomitant]
  6. ISCOTIN (ISONIAZIDE) [Concomitant]
  7. PREDNISOLONE [Concomitant]

REACTIONS (2)
  - COUGH [None]
  - PNEUMONIA FUNGAL [None]
